FAERS Safety Report 20184857 (Version 2)
Quarter: 2021Q4

REPORT INFORMATION
  Report Type: Spontaneous
  Country: US (occurrence: US)
  Receive Date: 20211214
  Receipt Date: 20211223
  Transmission Date: 20220303
  Serious: Yes (Hospitalization, Other)
  Sender: FDA-Public Use
  Company Number: US-ALXN-A202113523

PATIENT
  Age: 75 Year
  Sex: Male
  Weight: 79.365 kg

DRUGS (11)
  1. SOLIRIS [Suspect]
     Active Substance: ECULIZUMAB
     Indication: Myasthenia gravis
     Dosage: 900 MG, UNK
     Route: 042
     Dates: start: 20210825
  2. SOLIRIS [Suspect]
     Active Substance: ECULIZUMAB
     Dosage: 1200 MG, Q2W
     Route: 042
  3. ELIQUIS [Concomitant]
     Active Substance: APIXABAN
     Indication: Product used for unknown indication
     Dosage: 5 MG, BID
     Route: 065
  4. MESTINON [Concomitant]
     Active Substance: PYRIDOSTIGMINE BROMIDE
     Indication: Product used for unknown indication
     Dosage: 60 MG, Q8H
     Route: 065
  5. PREDNISONE [Concomitant]
     Active Substance: PREDNISONE
     Indication: Myasthenia gravis
     Dosage: 60 MG, QD
     Route: 065
  6. OXYCODONE [Concomitant]
     Active Substance: OXYCODONE
     Indication: Product used for unknown indication
     Dosage: 5 MG, Q6H
  7. MELATONIN [Concomitant]
     Active Substance: MELATONIN
     Indication: Product used for unknown indication
     Dosage: 5 MG, QHS
     Route: 065
  8. LISINOPRIL [Concomitant]
     Active Substance: LISINOPRIL
     Indication: Product used for unknown indication
     Dosage: 20 MG, QD
     Route: 065
  9. ESOMEPRAZOLE [Concomitant]
     Active Substance: ESOMEPRAZOLE
     Indication: Product used for unknown indication
     Dosage: 40 MG, BID
     Route: 065
  10. FENOFIBRATE [Concomitant]
     Active Substance: FENOFIBRATE
     Indication: Product used for unknown indication
     Dosage: 160 MG, UNK
     Route: 065
  11. IPRATROPIUM BROMIDE AND ALBUTEROL SULFATE [Concomitant]
     Active Substance: ALBUTEROL SULFATE\IPRATROPIUM BROMIDE
     Indication: Product used for unknown indication
     Dosage: IPRATROPIUM 0.5MG/ALBUTEROL 3 MG, NEBULIZER, Q6H
     Route: 055

REACTIONS (3)
  - Endocarditis staphylococcal [Recovering/Resolving]
  - Pneumonia [Unknown]
  - Urinary tract infection [Unknown]

NARRATIVE: CASE EVENT DATE: 20211123
